FAERS Safety Report 8597418-2 (Version None)
Quarter: 2012Q3

REPORT INFORMATION
  Report Type: 
  Country: None (occurrence: None)
  Receive Date: 20120816
  Receipt Date: 20120813
  Transmission Date: 20120928
  Serious: Yes (Other)
  Sender: FDA-Public Use
  Company Number: US-TEVA-346362USA

PATIENT
  Sex: Female
  Weight: 37.228 kg

DRUGS (6)
  1. PENTASA [Concomitant]
  2. CIPROFLOXACIN HCL [Concomitant]
  3. FLAGYL [Concomitant]
  4. MERCAPTOPURINE [Suspect]
  5. ACTIQ [Suspect]
     Indication: PAIN
  6. ACTIQ [Suspect]
     Indication: CROHN'S DISEASE
     Route: 002

REACTIONS (11)
  - HEART RATE INCREASED [None]
  - PAIN [None]
  - MALAISE [None]
  - PALPITATIONS [None]
  - RESPIRATORY RATE INCREASED [None]
  - TOOTH LOSS [None]
  - PANCREATITIS [None]
  - EUPHORIC MOOD [None]
  - DIZZINESS [None]
  - THINKING ABNORMAL [None]
  - OFF LABEL USE [None]
